FAERS Safety Report 15291334 (Version 1)
Quarter: 2018Q3

REPORT INFORMATION
  Report Type: Report from Study
  Country: IT (occurrence: IT)
  Receive Date: 20180817
  Receipt Date: 20180817
  Transmission Date: 20181010
  Serious: Yes (Other)
  Sender: FDA-Public Use
  Company Number: IT-TEVA-2018-IT-942475

PATIENT
  Age: 95 Year
  Sex: Female
  Weight: 53 kg

DRUGS (10)
  1. CLOPIDOGREL [Concomitant]
     Active Substance: CLOPIDOGREL BISULFATE
  2. NEBIVOLOL. [Concomitant]
     Active Substance: NEBIVOLOL
  3. INSULIN LISPRO [Concomitant]
     Active Substance: INSULIN LISPRO
  4. INSULIN GLARGINE [Concomitant]
     Active Substance: INSULIN GLARGINE
  5. ACETYLSALICYLIC ACID [Concomitant]
     Active Substance: ASPIRIN
     Dosage: 100 MILLIGRAM DAILY;
  6. AMLODIPINE [Concomitant]
     Active Substance: AMLODIPINE BESYLATE
  7. RAMIPRIL. [Concomitant]
     Active Substance: RAMIPRIL
  8. ENOXAPARIN SODIUM. [Concomitant]
     Active Substance: ENOXAPARIN SODIUM
  9. PANTOPRAZOLE [Concomitant]
     Active Substance: PANTOPRAZOLE
  10. SERTRALINE [Suspect]
     Active Substance: SERTRALINE HYDROCHLORIDE
     Indication: DEPRESSION
     Dosage: 50 MILLIGRAM DAILY;
     Route: 048

REACTIONS (1)
  - Electrocardiogram QT prolonged [Unknown]

NARRATIVE: CASE EVENT DATE: 20180526
